FAERS Safety Report 13846910 (Version 2)
Quarter: 2017Q4

REPORT INFORMATION
  Report Type: Spontaneous
  Country: US (occurrence: US)
  Receive Date: 20170808
  Receipt Date: 20171109
  Transmission Date: 20180320
  Serious: No
  Sender: FDA-Public Use
  Company Number: US-SA-2017SA112659

PATIENT
  Age: 57 Year
  Sex: Female

DRUGS (1)
  1. XYZAL ALLERGY 24HR [Suspect]
     Active Substance: LEVOCETIRIZINE DIHYDROCHLORIDE
     Indication: URTICARIA
     Route: 048
     Dates: start: 20170618, end: 20170620

REACTIONS (4)
  - Somnolence [Recovered/Resolved]
  - Facial pain [Recovered/Resolved]
  - Ear pain [Recovered/Resolved]
  - Off label use [Unknown]
